FAERS Safety Report 18859762 (Version 1)
Quarter: 2021Q1

REPORT INFORMATION
  Report Type: Spontaneous
  Country: US (occurrence: US)
  Receive Date: 20210208
  Receipt Date: 20210208
  Transmission Date: 20210420
  Serious: Yes (Life-Threatening, Disabling)
  Sender: FDA-Public Use
  Company Number: None

PATIENT
  Age: 56 Year
  Sex: Female
  Weight: 67.95 kg

DRUGS (13)
  1. ZINC. [Concomitant]
     Active Substance: ZINC
  2. ESCITALOPRAM GENERIC FOR LEXAPRO [Suspect]
     Active Substance: ESCITALOPRAM OXALATE
     Indication: DEPRESSION
     Dosage: ?          QUANTITY:1 DROP(S);?
     Route: 048
     Dates: start: 20010601, end: 20201101
  3. VITAMIN D3 [Concomitant]
     Active Substance: CHOLECALCIFEROL
  4. MAGNESIUM [Concomitant]
     Active Substance: MAGNESIUM
  5. SPIRALING DIM [Concomitant]
  6. SUBLINGUAL ESTROGEN [Concomitant]
  7. PROGESTERONE. [Concomitant]
     Active Substance: PROGESTERONE
  8. PROBIOTICS [Concomitant]
     Active Substance: PROBIOTICS NOS
  9. BUPROPION XL [Concomitant]
     Active Substance: BUPROPION
  10. LIOTHYRONINE [Concomitant]
     Active Substance: LIOTHYRONINE
  11. VITAMIN B COMPLEX [Concomitant]
     Active Substance: CYANOCOBALAMIN\DEXPANTHENOL\NIACINAMIDE\PYRIDOXINE HYDROCHLORIDE\RIBOFLAVIN 5^-PHOSPHATE SODIUM\THIAMINE HYDROCHLORIDE\VITAMIN B COMPLEX
  12. LEVOTHYROXINE. [Concomitant]
     Active Substance: LEVOTHYROXINE
  13. FISH OIL [Concomitant]
     Active Substance: FISH OIL

REACTIONS (12)
  - Dizziness [None]
  - Chills [None]
  - Pain [None]
  - Fear [None]
  - Nausea [None]
  - Mental disorder [None]
  - Withdrawal syndrome [None]
  - Anxiety [None]
  - Depression [None]
  - Intrusive thoughts [None]
  - Suicidal ideation [None]
  - Panic reaction [None]

NARRATIVE: CASE EVENT DATE: 20200610
